FAERS Safety Report 5730260-6 (Version None)
Quarter: 2008Q2

REPORT INFORMATION
  Report Type: 
  Country: None (occurrence: None)
  Receive Date: 20080430
  Receipt Date: 20080202
  Transmission Date: 20081010
  Serious: No
  Sender: FDA-Public Use
  Company Number: 2008PV034119

PATIENT
  Age: 22 Year
  Sex: Female
  Weight: 61.2356 kg

DRUGS (6)
  1. SYMLINPEN 60 (PRAMLINTIDE ACETATE) PEN-INJECTOR (0.6 MG/ML) [Suspect]
     Dosage: 60 MCG; SC, 45 MCG; SC, 30 MCG; SC, 15 MCG; SC
     Route: 058
     Dates: start: 20080101, end: 20080101
  2. SYMLINPEN 60 (PRAMLINTIDE ACETATE) PEN-INJECTOR (0.6 MG/ML) [Suspect]
     Dosage: 60 MCG; SC, 45 MCG; SC, 30 MCG; SC, 15 MCG; SC
     Route: 058
     Dates: start: 20080101, end: 20080101
  3. SYMLINPEN 60 (PRAMLINTIDE ACETATE) PEN-INJECTOR (0.6 MG/ML) [Suspect]
     Dosage: 60 MCG; SC, 45 MCG; SC, 30 MCG; SC, 15 MCG; SC
     Route: 058
     Dates: start: 20080101, end: 20080101
  4. SYMLINPEN 60 (PRAMLINTIDE ACETATE) PEN-INJECTOR (0.6 MG/ML) [Suspect]
     Dosage: 60 MCG; SC, 45 MCG; SC, 30 MCG; SC, 15 MCG; SC
     Route: 058
     Dates: start: 20080101
  5. LANTUS [Concomitant]
  6. HUMALOG [Concomitant]

REACTIONS (1)
  - ARTHRALGIA [None]
